FAERS Safety Report 4468468-2 (Version None)
Quarter: 2004Q4

REPORT INFORMATION
  Report Type: 
  Country: None (occurrence: None)
  Receive Date: 20041006
  Receipt Date: 20041001
  Transmission Date: 20050328
  Serious: Yes (Other)
  Sender: FDA-Public Use
  Company Number: 002837

PATIENT
  Age: 58 Year
  Sex: Female

DRUGS (5)
  1. MEDROXYPROGESTERONE ACETATE [Suspect]
     Dates: start: 19930101, end: 19970101
  2. PREMARIN [Suspect]
     Dates: start: 19930101, end: 19970101
  3. MEDROXYPROGESTERONE ACETATE [Suspect]
     Dates: start: 19970701, end: 19980714
  4. PREMPHASE (PREMARIN;CYCRIN 14/14) [Suspect]
     Dates: start: 19960101, end: 19970701
  5. PROVERA [Suspect]
     Dates: start: 19930101, end: 19970101

REACTIONS (1)
  - BREAST CANCER FEMALE [None]
